FAERS Safety Report 5745545-7 (Version None)
Quarter: 2008Q2

REPORT INFORMATION
  Report Type: 
  Country: None (occurrence: None)
  Receive Date: 20080521
  Receipt Date: 20080509
  Transmission Date: 20081010
  Serious: Yes (Life-Threatening)
  Sender: FDA-Public Use
  Company Number: CH-PFIZER INC-2007009153

PATIENT
  Sex: Female
  Weight: 32 kg

DRUGS (2)
  1. GENOTROPIN [Suspect]
     Indication: TURNER'S SYNDROME
     Route: 058
     Dates: start: 20060824, end: 20070121
  2. CALCIMAGON-D3 [Concomitant]
     Dosage: FREQ:TWICE DAILY
     Route: 048

REACTIONS (1)
  - COLORECTAL CANCER [None]
